FAERS Safety Report 7285223-9 (Version None)
Quarter: 2011Q1

REPORT INFORMATION
  Report Type: 
  Country: None (occurrence: None)
  Receive Date: 20110210
  Receipt Date: 20110131
  Transmission Date: 20110831
  Serious: Yes (Hospitalization, Other)
  Sender: FDA-Public Use
  Company Number: US-JNJCH-2011002819

PATIENT
  Sex: Female
  Weight: 48.1 kg

DRUGS (10)
  1. BENADRYL [Suspect]
     Indication: PRODUCT USED FOR UNKNOWN INDICATION
     Dosage: TEXT:UNKNOWN
     Route: 065
  2. POTASSIUM CHLORIDE [Concomitant]
     Indication: PRODUCT USED FOR UNKNOWN INDICATION
     Dosage: TEXT:10MEQ
     Route: 065
  3. TRICOR [Suspect]
     Indication: PRODUCT USED FOR UNKNOWN INDICATION
     Dosage: TEXT:UNKNOWN
     Route: 065
  4. LEVOTHYROXINE SODIUM [Concomitant]
     Indication: PRODUCT USED FOR UNKNOWN INDICATION
     Dosage: TEXT:88MCG
     Route: 065
  5. LYRICA [Suspect]
     Indication: NERVE INJURY
     Dosage: TEXT:75MG DAILY
     Route: 048
  6. CRESTOR [Suspect]
     Indication: PRODUCT USED FOR UNKNOWN INDICATION
     Dosage: TEXT:UNKNOWN
     Route: 065
  7. FUROSEMIDE [Concomitant]
     Indication: PRODUCT USED FOR UNKNOWN INDICATION
     Dosage: TEXT:20MG AS NEEDED
     Route: 065
  8. LYRICA [Suspect]
     Dosage: TEXT:75MG THREE TIMES DAILY
     Route: 048
  9. OXYCONTIN [Concomitant]
     Indication: PAIN
     Dosage: TEXT:10MG DAILY
     Route: 065
  10. CARVEDILOL [Concomitant]
     Indication: CARDIAC DISORDER
     Dosage: TEXT:3.125MG TWICE DAILY
     Route: 065

REACTIONS (10)
  - HYPERSENSITIVITY [None]
  - HEADACHE [None]
  - PAIN IN EXTREMITY [None]
  - CALCINOSIS [None]
  - EYE DISORDER [None]
  - ASTHENIA [None]
  - MUSCLE SPASMS [None]
  - SOMNOLENCE [None]
  - FATIGUE [None]
  - RASH ERYTHEMATOUS [None]
